FAERS Safety Report 18303983 (Version 2)
Quarter: 2020Q4

REPORT INFORMATION
  Report Type: Spontaneous
  Country: US (occurrence: US)
  Receive Date: 20200924
  Receipt Date: 20201007
  Transmission Date: 20210113
  Serious: Yes (Other)
  Sender: FDA-Public Use
  Company Number: US-TEVA-2020-US-1829808

PATIENT
  Sex: Male

DRUGS (3)
  1. PEMBROLIZUMAB. [Suspect]
     Active Substance: PEMBROLIZUMAB
     Indication: SALIVARY GLAND CANCER
     Dosage: 200MG ONCE IN 3 WEEKS
     Route: 042
     Dates: start: 201608, end: 201808
  2. LEUPROLIDE ACETATE. [Concomitant]
     Active Substance: LEUPROLIDE ACETATE
     Indication: SALIVARY GLAND CANCER
     Route: 065
     Dates: start: 2016
  3. PACLITAXEL. [Suspect]
     Active Substance: PACLITAXEL
     Indication: SALIVARY GLAND CANCER
     Dosage: FOR 3 WEEKS
     Route: 065
     Dates: start: 2016, end: 2016

REACTIONS (3)
  - Neuropathy peripheral [Unknown]
  - Dry mouth [Unknown]
  - Cough [Unknown]

NARRATIVE: CASE EVENT DATE: 2016
